FAERS Safety Report 7514866-X (Version None)
Quarter: 2011Q2

REPORT INFORMATION
  Report Type: 
  Country: None (occurrence: None)
  Receive Date: 20110601
  Receipt Date: 20110519
  Transmission Date: 20111010
  Serious: No
  Sender: FDA-Public Use
  Company Number: US-JNJFOC-20110509982

PATIENT
  Sex: Male
  Weight: 117.94 kg

DRUGS (9)
  1. NEXIUM [Concomitant]
     Indication: HIATUS HERNIA
     Route: 048
  2. FENTANYL [Suspect]
     Route: 062
  3. FENTANYL [Suspect]
     Indication: PRODUCT USED FOR UNKNOWN INDICATION
     Route: 062
  4. HYDROCHLOROTHIAZIDE [Concomitant]
     Indication: DIURETIC THERAPY
     Route: 048
  5. CARDIZEM LA [Concomitant]
     Indication: BLOOD PRESSURE
     Route: 048
  6. LANTUS [Concomitant]
     Indication: DIABETES MELLITUS
     Route: 058
  7. HUMALOG [Concomitant]
     Indication: DIABETES MELLITUS
     Route: 058
  8. FENTANYL [Suspect]
     Indication: BACK PAIN
     Dosage: NDC#0781-7243-55
     Route: 062
  9. ALTACE [Concomitant]
     Indication: BLOOD PRESSURE
     Route: 048

REACTIONS (4)
  - DRUG ADMINISTERED AT INAPPROPRIATE SITE [None]
  - DRUG EFFECT DECREASED [None]
  - DRUG INEFFECTIVE [None]
  - WRONG TECHNIQUE IN DRUG USAGE PROCESS [None]
